FAERS Safety Report 10636734 (Version 1)
Quarter: 2014Q4

REPORT INFORMATION
  Report Type: Spontaneous
  Country: US (occurrence: US)
  Receive Date: 20141208
  Receipt Date: 20141208
  Transmission Date: 20150529
  Serious: No
  Sender: FDA-Public Use
  Company Number: US-ASTRAZENECA-2014SE93541

PATIENT
  Age: 82 Year
  Sex: Male
  Weight: 72.6 kg

DRUGS (2)
  1. NEXIUM 24HR [Suspect]
     Active Substance: ESOMEPRAZOLE MAGNESIUM
     Indication: DYSPEPSIA
     Route: 048
  2. METOPROLOL [Concomitant]
     Active Substance: METOPROLOL

REACTIONS (4)
  - Constipation [Unknown]
  - Drug ineffective [Not Recovered/Not Resolved]
  - Weight decreased [Unknown]
  - Intentional product misuse [Unknown]
